FAERS Safety Report 4555833-8 (Version None)
Quarter: 2005Q1

REPORT INFORMATION
  Report Type: 
  Country: None (occurrence: None)
  Receive Date: 20050111
  Receipt Date: 20041008
  Transmission Date: 20050727
  Serious: No
  Sender: FDA-Public Use
  Company Number: 2004S1000227

PATIENT
  Age: 46 Year
  Sex: Male
  Weight: 117 kg

DRUGS (7)
  1. CUBICIN [Suspect]
     Indication: ENDOCARDITIS
     Dosage: 740 MG;Q24H;IV
     Route: 042
     Dates: start: 20040906
  2. CUBICIN [Suspect]
     Indication: PATHOGEN RESISTANCE
     Dosage: 740 MG;Q24H;IV
     Route: 042
     Dates: start: 20040906
  3. GENTAMICIN [Suspect]
     Indication: ENDOCARDITIS
     Dosage: 80 MG;Q12H;IV
     Route: 042
     Dates: start: 20040905, end: 20041008
  4. SYNTHROID [Concomitant]
  5. PROTONIX [Concomitant]
  6. QUININE [Concomitant]
  7. AMPICILLIN [Concomitant]

REACTIONS (1)
  - BLOOD CREATININE INCREASED [None]
